FAERS Safety Report 23605921 (Version 1)
Quarter: 2024Q1

REPORT INFORMATION
  Report Type: Spontaneous
  Country: FR (occurrence: FR)
  Receive Date: 20240307
  Receipt Date: 20240307
  Transmission Date: 20240410
  Serious: Yes (Death, Life-Threatening, Other)
  Sender: FDA-Public Use
  Company Number: None

PATIENT
  Age: 63 Year
  Sex: Female
  Weight: 41 kg

DRUGS (3)
  1. DOCETAXEL [Suspect]
     Active Substance: DOCETAXEL\DOCETAXEL ANHYDROUS
     Indication: Squamous cell carcinoma of pharynx
     Dosage: 104 MG
     Route: 040
     Dates: start: 20231212, end: 20240103
  2. CARBOPLATIN [Suspect]
     Active Substance: CARBOPLATIN
     Indication: Squamous cell carcinoma of pharynx
     Dosage: 380 MG
     Route: 040
     Dates: start: 20231212, end: 20240103
  3. FLUOROURACIL [Suspect]
     Active Substance: FLUOROURACIL
     Indication: Squamous cell carcinoma of pharynx
     Dosage: 5200 MG
     Route: 040
     Dates: start: 20231212, end: 20240103

REACTIONS (3)
  - Acute kidney injury [Fatal]
  - Febrile bone marrow aplasia [Fatal]
  - Sepsis [Fatal]

NARRATIVE: CASE EVENT DATE: 20240107
